FAERS Safety Report 26145814 (Version 2)
Quarter: 2025Q4

REPORT INFORMATION
  Report Type: Spontaneous
  Country: US (occurrence: US)
  Receive Date: 20251211
  Receipt Date: 20251219
  Transmission Date: 20260118
  Serious: Yes (Hospitalization)
  Sender: GERON CORP
  Company Number: US-GERON CORPORATION-US-GER-25-000256

PATIENT
  Age: 81 Year
  Sex: Female

DRUGS (1)
  1. RYTELO [Suspect]
     Active Substance: IMETELSTAT SODIUM
     Indication: Myelodysplastic syndrome
     Dosage: UNK, UNK
     Route: 042
     Dates: start: 20251017, end: 20251017

REACTIONS (2)
  - Transfusion reaction [Unknown]
  - Platelet count decreased [Recovered/Resolved]

NARRATIVE: CASE EVENT DATE: 20251104
